FAERS Safety Report 15488015 (Version 2)
Quarter: 2018Q4

REPORT INFORMATION
  Report Type: Report from Study
  Country: UA (occurrence: UA)
  Receive Date: 20181011
  Receipt Date: 20181212
  Transmission Date: 20190205
  Serious: Yes (Other)
  Sender: FDA-Public Use
  Company Number: UA-CELGENEUS-UKR-20180509788

PATIENT
  Age: 75 Year
  Sex: Female

DRUGS (31)
  1. ABRAXANE [Suspect]
     Active Substance: PACLITAXEL
     Indication: BREAST CANCER METASTATIC
     Dosage: 100 MILLIGRAM/SQ. METER
     Route: 041
     Dates: start: 20170130, end: 20180403
  2. ATEZOLIZUMAB. [Suspect]
     Active Substance: ATEZOLIZUMAB
     Indication: BREAST CANCER METASTATIC
     Dosage: 1200 MILLIGRAM
     Route: 041
     Dates: start: 20170130, end: 20180502
  3. SORBEX [Concomitant]
     Indication: BLOOD URIC ACID INCREASED
     Route: 065
     Dates: start: 20170329
  4. CONCOR [Concomitant]
     Active Substance: BISOPROLOL FUMARATE
     Indication: HYPERTENSION
     Route: 065
     Dates: start: 20170125
  5. TIZALUD [Concomitant]
     Indication: INTERVERTEBRAL DISC PROTRUSION
     Route: 065
     Dates: start: 20180403
  6. LIRICA [Concomitant]
     Active Substance: PREGABALIN
     Indication: INTERVERTEBRAL DISC PROTRUSION
     Route: 065
     Dates: start: 20180403
  7. LIRICA [Concomitant]
     Active Substance: PREGABALIN
     Indication: INTERVERTEBRAL DISC PROTRUSION
  8. NEUROMIDINE [Concomitant]
     Indication: INTERVERTEBRAL DISC PROTRUSION
     Route: 065
     Dates: start: 20180403
  9. THIOCTIC ACID [Concomitant]
     Active Substance: THIOCTIC ACID
     Indication: INTERVERTEBRAL DISC PROTRUSION
  10. KELTICAN [Concomitant]
     Indication: INTERVERTEBRAL DISC PROTRUSION
  11. CO-PRENESSA [Concomitant]
     Active Substance: INDAPAMIDE\PERINDOPRIL ERBUMINE
     Indication: ESSENTIAL HYPERTENSION
     Route: 065
     Dates: start: 20170125
  12. XEFOCAM [Concomitant]
     Indication: INTERVERTEBRAL DISC PROTRUSION
  13. PARACETAMOL [Concomitant]
     Active Substance: ACETAMINOPHEN
     Indication: RESPIRATORY TRACT INFECTION VIRAL
     Route: 065
     Dates: start: 20180411
  14. ATORIS [Concomitant]
     Active Substance: ATORVASTATIN CALCIUM
     Indication: ESSENTIAL HYPERTENSION
     Route: 065
     Dates: start: 20170125
  15. XEFOCAM [Concomitant]
     Indication: INTERVERTEBRAL DISC PROTRUSION
     Route: 065
     Dates: start: 20180403
  16. NEUROMIDINE [Concomitant]
     Indication: INTERVERTEBRAL DISC PROTRUSION
  17. BERLITION [Concomitant]
     Indication: ASPARTATE AMINOTRANSFERASE INCREASED
     Route: 065
     Dates: start: 20180417, end: 20180417
  18. ATORIS [Concomitant]
     Active Substance: ATORVASTATIN CALCIUM
     Indication: MYOCARDIAL ISCHAEMIA
  19. CONCOR [Concomitant]
     Active Substance: BISOPROLOL FUMARATE
     Indication: MYOCARDIAL ISCHAEMIA
  20. THIOCTIC ACID [Concomitant]
     Active Substance: THIOCTIC ACID
     Indication: INTERVERTEBRAL DISC PROTRUSION
     Route: 065
     Dates: start: 20180403
  21. GROPRINOSIN [Concomitant]
     Active Substance: INOSINE PRANOBEX
     Indication: RESPIRATORY TRACT INFECTION VIRAL
     Route: 065
     Dates: start: 20180411
  22. ASPIRIN. [Concomitant]
     Active Substance: ASPIRIN
     Indication: ESSENTIAL HYPERTENSION
     Route: 065
     Dates: start: 20160125
  23. SORBEX [Concomitant]
     Indication: BLOOD UREA INCREASED
     Route: 065
     Dates: start: 20170214
  24. CO-PRENESSA [Concomitant]
     Active Substance: INDAPAMIDE\PERINDOPRIL ERBUMINE
     Indication: MYOCARDIAL ISCHAEMIA
  25. THIOTRIAZOLINE [Concomitant]
     Indication: POLYNEUROPATHY
     Route: 065
     Dates: start: 20170424
  26. TIZALUD [Concomitant]
     Indication: INTERVERTEBRAL DISC PROTRUSION
  27. KELTICAN [Concomitant]
     Indication: INTERVERTEBRAL DISC PROTRUSION
     Route: 065
     Dates: start: 20180403
  28. BERLITION [Concomitant]
     Indication: BLOOD ALKALINE PHOSPHATASE INCREASED
     Route: 065
     Dates: start: 20180410, end: 20180410
  29. BERLITION [Concomitant]
     Indication: ALANINE AMINOTRANSFERASE INCREASED
     Route: 065
     Dates: start: 20180529, end: 20180529
  30. BERLITION [Concomitant]
     Indication: HEPATITIS TOXIC
     Route: 065
     Dates: start: 20180516, end: 20180530
  31. BERLITION [Concomitant]
     Route: 065
     Dates: start: 20170816

REACTIONS (1)
  - Hepatitis toxic [Recovered/Resolved]

NARRATIVE: CASE EVENT DATE: 20180410
